FAERS Safety Report 9772674 (Version 2)
Quarter: 2013Q4

REPORT INFORMATION
  Report Type: Spontaneous
  Country: FR (occurrence: FR)
  Receive Date: 20131219
  Receipt Date: 20131223
  Transmission Date: 20140711
  Serious: Yes (Hospitalization)
  Sender: FDA-Public Use
  Company Number: FR-PFIZER INC-2013360307

PATIENT
  Age: 67 Year
  Sex: Male

DRUGS (7)
  1. SOLU-MEDROL [Suspect]
     Indication: HYPOPHARYNGEAL CANCER
     Dosage: UNK
     Route: 042
     Dates: start: 20130722, end: 20130722
  2. CARBOPLATIN [Suspect]
     Indication: HYPOPHARYNGEAL CANCER
     Dosage: 75 MG, DAILY
     Route: 042
     Dates: start: 20130722, end: 20130722
  3. FLUOROURACIL [Suspect]
     Indication: HYPOPHARYNGEAL CANCER
     Dosage: 1290 MG, CYCLIC
     Route: 042
     Dates: start: 20130722, end: 20130727
  4. TAXOTERE [Suspect]
     Indication: HYPOPHARYNGEAL CANCER
     Dosage: 129 MG, DAILY
     Route: 042
     Dates: start: 20130722, end: 20130722
  5. ZOPHREN [Suspect]
     Indication: PREMEDICATION
     Dosage: 1 DF, 1X/DAY
     Route: 042
     Dates: start: 20130722, end: 20130722
  6. SOLUPRED [Suspect]
     Indication: PREMEDICATION
     Dosage: UNK
     Route: 048
     Dates: start: 20130721, end: 20130723
  7. COZAAR [Concomitant]
     Indication: HYPERTENSION
     Dosage: 0.5 DF, DAILY
     Route: 048

REACTIONS (3)
  - Agranulocytosis [Recovered/Resolved]
  - Thrombocytopenia [Recovered/Resolved]
  - Pyrexia [Recovered/Resolved]
